FAERS Safety Report 6160699-9 (Version None)
Quarter: 2009Q2

REPORT INFORMATION
  Report Type: 
  Country: None (occurrence: None)
  Receive Date: 20090420
  Receipt Date: 20090416
  Transmission Date: 20091009
  Serious: Yes (Hospitalization)
  Sender: FDA-Public Use
  Company Number: US-BRISTOL-MYERS SQUIBB COMPANY-14590947

PATIENT
  Age: 65 Year
  Sex: Female

DRUGS (8)
  1. CYTOXAN [Suspect]
     Indication: BREAST CANCER
     Dosage: IST CYCLE: 09-MAR-2009
     Dates: start: 20090330, end: 20090330
  2. TAXOTERE [Suspect]
     Indication: BREAST CANCER
     Dosage: SOLN FOR INJECTION FIRST CYCLE ON 09MAR09,
     Route: 042
     Dates: start: 20090330, end: 20090330
  3. DECADRON [Concomitant]
     Indication: PREMEDICATION
  4. BENADRYL [Concomitant]
     Indication: PREMEDICATION
  5. CALCIUM [Concomitant]
  6. LISINOPRIL [Concomitant]
  7. ACETAMINOPHEN [Concomitant]
  8. OXYCODONE HCL [Concomitant]

REACTIONS (2)
  - ABDOMINAL PAIN [None]
  - INTESTINAL PERFORATION [None]
